FAERS Safety Report 13530594 (Version 2)
Quarter: 2017Q2

REPORT INFORMATION
  Report Type: Report from Study
  Country: US (occurrence: US)
  Receive Date: 20170510
  Receipt Date: 20170609
  Transmission Date: 20170830
  Serious: Yes (Hospitalization)
  Sender: FDA-Public Use
  Company Number: US-ROCHE-1931599

PATIENT
  Sex: Female
  Weight: 83.08 kg

DRUGS (5)
  1. XOLAIR [Suspect]
     Active Substance: OMALIZUMAB
     Indication: FIBROMYALGIA
     Dosage: ONE INJECTION ONE FULL  DOSE ONCE PER MONTH ;ONGOING: NO
     Route: 058
  2. XOLAIR [Suspect]
     Active Substance: OMALIZUMAB
     Indication: IDIOPATHIC URTICARIA
     Dosage: HALF DOSE INJECTIONS ONCE PER MONTH ;ONGOING: NO
     Route: 065
  3. XOLAIR [Suspect]
     Active Substance: OMALIZUMAB
     Dosage: HALF DOSE INJECTION TWICE PER MONTH ;ONGOING: YES
     Route: 065
  4. SINGULAIR [Concomitant]
     Active Substance: MONTELUKAST SODIUM
  5. ZANTAC [Concomitant]
     Active Substance: RANITIDINE HYDROCHLORIDE

REACTIONS (3)
  - Off label use [Unknown]
  - Pain [Recovered/Resolved]
  - Rash [Recovered/Resolved]
